FAERS Safety Report 8769556 (Version 1)
Quarter: 2012Q4

REPORT INFORMATION
  Report Type: 
  Country: PT (occurrence: US)
  Receive Date: 20120905
  Receipt Date: 20120905
  Transmission Date: 20130627
  Serious: No
  Sender: FDA-Public Use
  Company Number: US-009507513-1209USA000720

PATIENT

DRUGS (1)
  1. NUVARING [Suspect]
     Indication: CONTRACEPTION
     Dosage: 3 weeks in, 1 week out
     Route: 067
     Dates: start: 201207

REACTIONS (2)
  - Incorrect storage of drug [Unknown]
  - Wrong technique in drug usage process [Unknown]
